FAERS Safety Report 5345301-8 (Version None)
Quarter: 2007Q2

REPORT INFORMATION
  Report Type: 
  Country: None (occurrence: None)
  Receive Date: 20070601
  Receipt Date: 20070523
  Transmission Date: 20071010
  Serious: Yes (Hospitalization)
  Sender: FDA-Public Use
  Company Number: 233447K07USA

PATIENT
  Age: 67 Year
  Sex: Male

DRUGS (5)
  1. REBIF [Suspect]
     Indication: MULTIPLE SCLEROSIS
     Dosage: 44 MCG, 3 IN 1 WEEKS, SUBCUTANEOUS
     Route: 058
     Dates: start: 20061026
  2. PROZAC [Concomitant]
  3. REQUIP [Concomitant]
  4. KLONOPIN CLONIPIN KLONIPIN (CLONAZEPAM) [Concomitant]
  5. ZOCOR [Concomitant]

REACTIONS (4)
  - DEEP VEIN THROMBOSIS [None]
  - DEVICE OCCLUSION [None]
  - GAIT DISTURBANCE [None]
  - GROIN INFECTION [None]
